FAERS Safety Report 4452639-5 (Version None)
Quarter: 2004Q3

REPORT INFORMATION
  Report Type: 
  Country: None (occurrence: None)
  Receive Date: 20040916
  Receipt Date: 20040903
  Transmission Date: 20050211
  Serious: No
  Sender: FDA-Public Use
  Company Number: 04P-143-0271521-00

PATIENT
  Age: 30 Year
  Sex: Female
  Weight: 100 kg

DRUGS (3)
  1. KALETRA [Suspect]
     Indication: HIV INFECTION
     Dosage: 3 TABLET, 2 IN 1 D, PER ORAL
     Route: 048
     Dates: start: 20040701
  2. SAQUINAVIR MEISILATE [Suspect]
     Indication: HIV INFECTION
     Dosage: 5 TABLET, 2 IN 1 D, PER ORAL
     Route: 048
     Dates: start: 20040701
  3. SAQUINAVIR MESILATE [Concomitant]

REACTIONS (2)
  - EUPHORIC MOOD [None]
  - INSOMNIA [None]
